FAERS Safety Report 6842143-9 (Version None)
Quarter: 2010Q3

REPORT INFORMATION
  Report Type: 
  Country: None (occurrence: None)
  Receive Date: 20100714
  Receipt Date: 20070720
  Transmission Date: 20110219
  Serious: No
  Sender: FDA-Public Use
  Company Number: US-PFIZER INC-2007061420

PATIENT
  Sex: Female
  Weight: 54.5 kg

DRUGS (9)
  1. CHANTIX [Suspect]
     Indication: SMOKING CESSATION THERAPY
     Dates: start: 20070717
  2. GABAPENTIN [Concomitant]
  3. OXYCODONE HCL AND ACETAMINOPHEN [Concomitant]
  4. NEXIUM [Concomitant]
  5. LUNESTA [Concomitant]
  6. SERTRALINE HYDROCHLORIDE [Concomitant]
  7. CRESTOR [Concomitant]
  8. MONTELUKAST SODIUM [Concomitant]
  9. PROMETHAZINE [Concomitant]

REACTIONS (1)
  - GASTROOESOPHAGEAL REFLUX DISEASE [None]
